FAERS Safety Report 8640873 (Version 2)
Quarter: 2012Q4

REPORT INFORMATION
  Report Type: 
  Country: CN (occurrence: CN)
  Receive Date: 20120628
  Receipt Date: 20120911
  Transmission Date: 20130627
  Serious: Yes (Other)
  Sender: FDA-Public Use
  Company Number: CN-SANOFI-AVENTIS-2012SA043507

PATIENT
  Age: 63 Year
  Sex: Female
  Weight: 165 kg

DRUGS (3)
  1. PLAVIX [Suspect]
     Indication: THROMBOSIS PROPHYLAXIS
     Route: 048
     Dates: start: 201206
  2. PLAVIX [Suspect]
     Indication: THROMBOSIS PROPHYLAXIS
     Route: 048
     Dates: start: 201112, end: 201206
  3. ATORVASTATIN [Concomitant]
     Indication: CORONARY HEART DISEASE
     Dosage: Dose:1 unit(s)
     Route: 048
     Dates: start: 201112

REACTIONS (2)
  - Chest discomfort [Recovered/Resolved]
  - Hyperhidrosis [Recovered/Resolved]
